FAERS Safety Report 6524762-2 (Version None)
Quarter: 2010Q1

REPORT INFORMATION
  Report Type: 
  Country: None (occurrence: None)
  Receive Date: 20100104
  Receipt Date: 20091222
  Transmission Date: 20100710
  Serious: Yes (Hospitalization)
  Sender: FDA-Public Use
  Company Number: ES-TEVA-219237ISR

PATIENT
  Sex: Female

DRUGS (1)
  1. COPAXONE [Suspect]
     Route: 058
     Dates: start: 20091217, end: 20091201

REACTIONS (9)
  - BACK PAIN [None]
  - DYSPNOEA [None]
  - MALAISE [None]
  - MUSCLE CONTRACTURE [None]
  - NAUSEA [None]
  - NERVOUSNESS [None]
  - PERIPHERAL COLDNESS [None]
  - PYREXIA [None]
  - TREMOR [None]
